FAERS Safety Report 8584978-0 (Version None)
Quarter: 2012Q2

REPORT INFORMATION
  Report Type: 
  Country: None (occurrence: None)
  Receive Date: 20120423
  Receipt Date: 20091106
  Transmission Date: 20120825
  Serious: Yes (Hospitalization)
  Sender: FDA-Public Use
  Company Number: PHEH2009US14585

PATIENT
  Sex: Female
  Weight: 91.2 kg

DRUGS (2)
  1. EXJADE [Suspect]
     Indication: SERUM FERRITIN INCREASED
     Dosage: 2000MG DAILY, ORAL
     Route: 048
     Dates: start: 20090904, end: 20091002
  2. EXJADE [Suspect]
     Indication: IRON OVERLOAD
     Dosage: 2000MG DAILY, ORAL
     Route: 048
     Dates: start: 20090904, end: 20091002

REACTIONS (7)
  - CARBON DIOXIDE DECREASED [None]
  - CHILLS [None]
  - PYREXIA [None]
  - BLOOD CHLORIDE INCREASED [None]
  - RENAL FAILURE [None]
  - BACK PAIN [None]
  - BLOOD POTASSIUM INCREASED [None]
